FAERS Safety Report 6981416-6 (Version None)
Quarter: 2010Q3

REPORT INFORMATION
  Report Type: 
  Country: None (occurrence: None)
  Receive Date: 20100914
  Receipt Date: 20100906
  Transmission Date: 20110219
  Serious: Yes (Hospitalization)
  Sender: FDA-Public Use
  Company Number: FR-B.I. PHARMACEUTICALS,INC./RIDGEFIELD-2010-FF-00708FF

PATIENT
  Age: 61 Year
  Sex: Female

DRUGS (5)
  1. PRAMIPEXOLE DIHYDROCHLORIDE [Suspect]
     Indication: PARKINSON'S DISEASE
     Dosage: 3.15 MG
     Route: 048
     Dates: start: 20090101
  2. MODOPAR [Suspect]
     Indication: PARKINSON'S DISEASE
     Dosage: 2000 MG
     Route: 048
     Dates: start: 20000101
  3. AZILECT [Suspect]
     Indication: PARKINSON'S DISEASE
     Dosage: 1 MG
     Route: 048
     Dates: start: 20090101
  4. COMTAN [Suspect]
     Indication: PARKINSON'S DISEASE
     Dosage: 1200 MG
     Route: 048
     Dates: start: 20100101
  5. SEROPLEX [Suspect]
     Indication: DEPRESSION
     Dosage: 20 MG
     Route: 048
     Dates: start: 20100501

REACTIONS (2)
  - COMPULSIONS [None]
  - OBSESSIVE-COMPULSIVE DISORDER [None]
